FAERS Safety Report 8370700-X (Version None)
Quarter: 2012Q2

REPORT INFORMATION
  Report Type: 
  Country: None (occurrence: None)
  Receive Date: 20120518
  Receipt Date: 20120514
  Transmission Date: 20120825
  Serious: Yes (Hospitalization)
  Sender: FDA-Public Use
  Company Number: US-BAYER-2012-020885

PATIENT
  Age: 27 Year
  Sex: Female
  Weight: 70.295 kg

DRUGS (2)
  1. YAZ [Suspect]
     Dosage: UNK
     Dates: start: 20070127, end: 20100923
  2. PRILOSEC [Concomitant]
     Dosage: 20 MG, UNK

REACTIONS (3)
  - PULMONARY EMBOLISM [None]
  - PAIN [None]
  - DYSPNOEA [None]
